FAERS Safety Report 9377745 (Version 1)
Quarter: 2013Q3

REPORT INFORMATION
  Report Type: Spontaneous
  Country: US (occurrence: US)
  Receive Date: 20130701
  Receipt Date: 20130701
  Transmission Date: 20140515
  Serious: Yes (Other)
  Sender: FDA-Public Use
  Company Number: US-TEVA-415375USA

PATIENT
  Age: 47 Year
  Sex: Female

DRUGS (1)
  1. CLOZAPINE [Suspect]
     Indication: SCHIZOPHRENIA
     Route: 065

REACTIONS (2)
  - Hyperlipidaemia [Recovered/Resolved]
  - Type 2 diabetes mellitus [Recovered/Resolved]
